FAERS Safety Report 24104637 (Version 1)
Quarter: 2024Q3

REPORT INFORMATION
  Report Type: Spontaneous
  Country: JP (occurrence: JP)
  Receive Date: 20240717
  Receipt Date: 20240717
  Transmission Date: 20241016
  Serious: Yes (Death)
  Sender: DR REDDYS
  Company Number: JP-RDY-SPO/JPN/24/0010341

PATIENT
  Age: 81 Year
  Sex: Female

DRUGS (1)
  1. FAVIPIRAVIR [Suspect]
     Active Substance: FAVIPIRAVIR
     Indication: Severe fever with thrombocytopenia syndrome
     Route: 048
     Dates: start: 20240705, end: 20240706

REACTIONS (1)
  - Multiple organ dysfunction syndrome [Fatal]
